FAERS Safety Report 25205895 (Version 1)
Quarter: 2025Q2

REPORT INFORMATION
  Report Type: Spontaneous
  Country: DE (occurrence: DE)
  Receive Date: 20250417
  Receipt Date: 20250417
  Transmission Date: 20250716
  Serious: No
  Sender: ALKEM
  Company Number: DE-ALKEM LABORATORIES LIMITED-DE-ALKEM-2025-02758

PATIENT

DRUGS (5)
  1. ESLICARBAZEPINE [Suspect]
     Active Substance: ESLICARBAZEPINE
     Indication: Epilepsy
     Route: 065
  2. LACOSAMIDE [Suspect]
     Active Substance: LACOSAMIDE
     Indication: Epilepsy
     Route: 065
  3. LAMOTRIGINE [Suspect]
     Active Substance: LAMOTRIGINE
     Indication: Epilepsy
     Route: 065
  4. LEVETIRACETAM [Suspect]
     Active Substance: LEVETIRACETAM
     Indication: Epilepsy
     Route: 065
  5. VALPROIC ACID [Suspect]
     Active Substance: VALPROIC ACID
     Indication: Epilepsy
     Route: 065

REACTIONS (22)
  - Oral disorder [Unknown]
  - Skin disorder [Unknown]
  - Abdominal discomfort [Unknown]
  - Multiple-drug resistance [Unknown]
  - Sleep disorder [Unknown]
  - Balance disorder [Unknown]
  - Weight increased [Unknown]
  - Nervousness [Unknown]
  - Restlessness [Unknown]
  - Alopecia [Unknown]
  - Fatigue [Unknown]
  - Depression [Unknown]
  - Aggression [Unknown]
  - Headache [Unknown]
  - Vision blurred [Unknown]
  - Tremor [Unknown]
  - Dizziness [Unknown]
  - Agitation [Unknown]
  - Memory impairment [Unknown]
  - Disturbance in attention [Unknown]
  - Somnolence [Unknown]
  - Diplopia [Unknown]
